FAERS Safety Report 17095002 (Version 1)
Quarter: 2019Q4

REPORT INFORMATION
  Report Type: Spontaneous
  Country: GB (occurrence: GB)
  Receive Date: 20191130
  Receipt Date: 20191130
  Transmission Date: 20200122
  Serious: Yes (Life-Threatening, Hospitalization)
  Sender: FDA-Public Use
  Company Number: GB-ACCORD-162187

PATIENT
  Age: 65 Year
  Sex: Male
  Weight: 107 kg

DRUGS (11)
  1. FOLIC ACID. [Concomitant]
     Active Substance: FOLIC ACID
  2. AMITRIPTYLINE [Concomitant]
     Active Substance: AMITRIPTYLINE
  3. BISOPROLOL [Concomitant]
     Active Substance: BISOPROLOL
  4. MICONAZOLE. [Concomitant]
     Active Substance: MICONAZOLE
  5. ENSTILAR [Concomitant]
     Active Substance: BETAMETHASONE DIPROPIONATE\CALCIPOTRIENE HYDRATE
  6. FEXOFENADINE [Concomitant]
     Active Substance: FEXOFENADINE HYDROCHLORIDE
  7. RANITIDINE. [Concomitant]
     Active Substance: RANITIDINE
  8. FLUCLOXACILLIN [Concomitant]
     Active Substance: FLUCLOXACILLIN
     Dates: start: 20191023
  9. IRON [Concomitant]
     Active Substance: IRON
  10. WARFARIN [Concomitant]
     Active Substance: WARFARIN
  11. METHOTREXATE. [Suspect]
     Active Substance: METHOTREXATE
     Indication: PSORIASIS
     Dosage: 20 MG TAKEN A WEEK APART
     Route: 048
     Dates: start: 201910

REACTIONS (6)
  - Haematoma infection [Unknown]
  - Diarrhoea [Unknown]
  - Mouth ulceration [Unknown]
  - Skin disorder [Unknown]
  - Mouth haemorrhage [Unknown]
  - Bone marrow failure [Not Recovered/Not Resolved]
